FAERS Safety Report 7627915-5 (Version None)
Quarter: 2011Q3

REPORT INFORMATION
  Report Type: 
  Country: None (occurrence: None)
  Receive Date: 20110721
  Receipt Date: 20110714
  Transmission Date: 20111222
  Serious: Yes (Other)
  Sender: FDA-Public Use
  Company Number: US-ABBOTT-11P-163-0839462-00

PATIENT
  Age: 47 Year
  Sex: Female

DRUGS (5)
  1. JANUMET [Concomitant]
     Indication: DIABETES MELLITUS
     Route: 048
  2. MOBIC [Concomitant]
     Indication: PAIN
  3. STARLIX [Concomitant]
     Indication: PRODUCT USED FOR UNKNOWN INDICATION
     Dosage: BEFORE MEALS
  4. HUMIRA [Suspect]
     Indication: PSORIATIC ARTHROPATHY
     Dates: start: 20090701, end: 20110702
  5. PERCOCET [Concomitant]
     Indication: PAIN MANAGEMENT
     Dosage: 7.5/325

REACTIONS (1)
  - BONE DISORDER [None]
